FAERS Safety Report 24673157 (Version 1)
Quarter: 2024Q4

REPORT INFORMATION
  Report Type: Spontaneous
  Country: US (occurrence: US)
  Receive Date: 20241128
  Receipt Date: 20241128
  Transmission Date: 20250115
  Serious: Yes (Other)
  Sender: IBSA INSTITUT BIOCHIMIQUE
  Company Number: US-IBSA PHARMA INC.-2024IBS000168

PATIENT
  Age: 23 Year

DRUGS (4)
  1. LEVOTHYROXINE SODIUM [Suspect]
     Active Substance: LEVOTHYROXINE SODIUM
     Indication: Hypothyroidism
     Dosage: UNK MICROGRAM
     Route: 048
  2. XOLAIR [Concomitant]
     Active Substance: OMALIZUMAB
     Indication: Hypersensitivity
     Dosage: UNK
     Route: 065
  3. METOPROLOL [Concomitant]
     Active Substance: METOPROLOL
     Indication: Tachycardia
     Dosage: UNK
     Route: 065
  4. DOMPERIDONE [Concomitant]
     Active Substance: DOMPERIDONE
     Indication: Impaired gastric emptying
     Dosage: UNK
     Route: 065

REACTIONS (7)
  - Hypothyroidism [Unknown]
  - Narcolepsy [Unknown]
  - Chronic spontaneous urticaria [Unknown]
  - Impaired gastric emptying [Unknown]
  - Fatigue [Unknown]
  - Sinus tachycardia [Unknown]
  - Nausea [Unknown]

NARRATIVE: CASE EVENT DATE: 20240401
